FAERS Safety Report 4437835-5 (Version None)
Quarter: 2004Q3

REPORT INFORMATION
  Report Type: 
  Country: None (occurrence: None)
  Receive Date: 20040831
  Receipt Date: 20040820
  Transmission Date: 20050211
  Serious: Yes (Hospitalization)
  Sender: FDA-Public Use
  Company Number: 200413129FR

PATIENT
  Age: 82 Year
  Sex: Male

DRUGS (6)
  1. LASILIX 40 MG [Suspect]
     Route: 048
     Dates: end: 20040522
  2. DIGOXIN [Suspect]
     Dosage: DOSE UNIT: UNITS
     Route: 048
     Dates: end: 20040522
  3. PREVISCAN [Suspect]
     Route: 048
  4. ATACAND [Suspect]
     Dosage: DOSE UNIT: UNITS
     Route: 048
     Dates: end: 20040522
  5. CORDARONE [Concomitant]
     Route: 048
  6. ARICEPT [Concomitant]
     Dosage: DOSE UNIT: UNITS
     Route: 048

REACTIONS (9)
  - ANOREXIA [None]
  - BLOOD ELECTROLYTES ABNORMAL [None]
  - CARDIOACTIVE DRUG LEVEL ABOVE THERAPEUTIC [None]
  - COAGULOPATHY [None]
  - GENERAL PHYSICAL HEALTH DETERIORATION [None]
  - HYPERSOMNIA [None]
  - HYPONATRAEMIA [None]
  - INTERNATIONAL NORMALISED RATIO INCREASED [None]
  - RENAL FAILURE [None]
